FAERS Safety Report 17079849 (Version 2)
Quarter: 2019Q4

REPORT INFORMATION
  Report Type: Report from Study
  Country: JP (occurrence: JP)
  Receive Date: 20191127
  Receipt Date: 20191223
  Transmission Date: 20200122
  Serious: Yes (Other)
  Sender: FDA-Public Use
  Company Number: JP-TEVA-813912ROM

PATIENT
  Age: 40 Year
  Sex: Female
  Weight: 47 kg

DRUGS (1)
  1. GLATIRAMER ACETATE. [Suspect]
     Active Substance: GLATIRAMER ACETATE
     Indication: RELAPSING-REMITTING MULTIPLE SCLEROSIS
     Dosage: 20 MILLIGRAM DAILY;
     Route: 058
     Dates: start: 20170808

REACTIONS (2)
  - Polyarteritis nodosa [Not Recovered/Not Resolved]
  - Injection site induration [Recovering/Resolving]

NARRATIVE: CASE EVENT DATE: 201709
